FAERS Safety Report 5356827-5 (Version None)
Quarter: 2007Q2

REPORT INFORMATION
  Report Type: 
  Country: None (occurrence: None)
  Receive Date: 20070614
  Receipt Date: 20070126
  Transmission Date: 20071010
  Serious: No
  Sender: FDA-Public Use
  Company Number: US-ASTRAZENECA-2007UW01640

PATIENT
  Age: 82 Year
  Sex: Female

DRUGS (3)
  1. ATACAND [Suspect]
     Indication: HYPERTENSION
     Route: 048
  2. ZOCOR [Concomitant]
  3. ACTONEL [Concomitant]

REACTIONS (2)
  - FALL [None]
  - SYNCOPE [None]
